APPROVED DRUG PRODUCT: CELECOXIB
Active Ingredient: CELECOXIB
Strength: 50MG
Dosage Form/Route: CAPSULE;ORAL
Application: A211412 | Product #001 | TE Code: AB
Applicant: YILING PHARMACEUTICAL LTD
Approved: Mar 6, 2020 | RLD: No | RS: No | Type: RX